FAERS Safety Report 4655137-9 (Version None)
Quarter: 2005Q2

REPORT INFORMATION
  Report Type: 
  Country: None (occurrence: None)
  Receive Date: 20050505
  Receipt Date: 20050422
  Transmission Date: 20051028
  Serious: Yes (Hospitalization)
  Sender: FDA-Public Use
  Company Number: 26534

PATIENT
  Age: 62 Year
  Sex: Male

DRUGS (2)
  1. GLYCERYL TRINITRATE TRANSDERMAL PATCH (GLYCERYL TRINITRATE) [Suspect]
     Indication: MYOCARDIAL ISCHAEMIA
     Route: 062
  2. CARDIOVASCULAR DRUGS [Concomitant]

REACTIONS (22)
  - C-REACTIVE PROTEIN INCREASED [None]
  - CELLULITIS [None]
  - CHEST X-RAY ABNORMAL [None]
  - ECHOGRAPHY ABNORMAL [None]
  - ERYTHEMA [None]
  - INFLAMMATION [None]
  - LEUKOCYTOSIS [None]
  - LUNG INFILTRATION [None]
  - MEDIASTINITIS [None]
  - MUSCLE DISORDER [None]
  - MUSCLE SWELLING [None]
  - NEUTROPHILIA [None]
  - OEDEMA [None]
  - PAIN [None]
  - PURULENCE [None]
  - PYREXIA [None]
  - RED BLOOD CELL SEDIMENTATION RATE INCREASED [None]
  - SKIN FISSURES [None]
  - SUBCUTANEOUS ABSCESS [None]
  - TACHYCARDIA [None]
  - TACHYPNOEA [None]
  - WRONG TECHNIQUE IN DRUG USAGE PROCESS [None]
